FAERS Safety Report 17261651 (Version 1)
Quarter: 2020Q1

REPORT INFORMATION
  Report Type: Spontaneous
  Country: US (occurrence: US)
  Receive Date: 20200113
  Receipt Date: 20200113
  Transmission Date: 20200409
  Serious: No
  Sender: FDA-Public Use
  Company Number: US-MYLANLABS-2019M1133119

PATIENT
  Sex: Female
  Weight: 54.42 kg

DRUGS (1)
  1. ERYGEL [Suspect]
     Active Substance: ERYTHROMYCIN
     Indication: ACNE
     Dosage: 2 PERCENT, QD (ONCE A DAY)
     Route: 061
     Dates: start: 2019, end: 2019

REACTIONS (2)
  - Erythema [Recovered/Resolved]
  - Skin injury [Recovered/Resolved]

NARRATIVE: CASE EVENT DATE: 2019
